FAERS Safety Report 17985590 (Version 1)
Quarter: 2020Q3

REPORT INFORMATION
  Report Type: Report from Study
  Country: BR (occurrence: BR)
  Receive Date: 20200706
  Receipt Date: 20200706
  Transmission Date: 20201103
  Serious: Yes (Other)
  Sender: FDA-Public Use
  Company Number: BR-BAYER-2020-133928

PATIENT
  Sex: Female

DRUGS (1)
  1. CHLOROQUINE. [Suspect]
     Active Substance: CHLOROQUINE
     Indication: COVID-19

REACTIONS (1)
  - Thrombosis [None]
